FAERS Safety Report 11838278 (Version 1)
Quarter: 2015Q4

REPORT INFORMATION
  Report Type: Spontaneous
  Country: US (occurrence: US)
  Receive Date: 20151215
  Receipt Date: 20151215
  Transmission Date: 20160305
  Serious: No
  Sender: FDA-Public Use
  Company Number: US-NOVOPROD-447373

PATIENT
  Age: 57 Year
  Sex: Male

DRUGS (4)
  1. NOVOLIN 70/30 [Suspect]
     Active Substance: INSULIN HUMAN
     Indication: TYPE 2 DIABETES MELLITUS
     Dosage: 30 U, IN THE MORNING
     Route: 058
  2. NOVOLIN 70/30 [Suspect]
     Active Substance: INSULIN HUMAN
     Dosage: 20 U, DECREASED MORNING DOSE
     Route: 058
  3. NOVOLIN 70/30 [Suspect]
     Active Substance: INSULIN HUMAN
     Dosage: 15 U, IN THE EVENING
     Route: 058
  4. LISINOPRIL. [Concomitant]
     Active Substance: LISINOPRIL
     Indication: BLOOD PRESSURE ABNORMAL

REACTIONS (8)
  - Flushing [Unknown]
  - Feeling abnormal [Unknown]
  - Vertigo [Unknown]
  - Dizziness [Not Recovered/Not Resolved]
  - Vision blurred [Not Recovered/Not Resolved]
  - Lethargy [Recovered/Resolved]
  - Paraesthesia [Unknown]
  - Fatigue [Unknown]
